FAERS Safety Report 5617253-4 (Version None)
Quarter: 2008Q1

REPORT INFORMATION
  Report Type: 
  Country: None (occurrence: None)
  Receive Date: 20080204
  Receipt Date: 20080124
  Transmission Date: 20080703
  Serious: Yes (Hospitalization, Other)
  Sender: FDA-Public Use
  Company Number: 2007-02507

PATIENT
  Age: 64 Year
  Sex: Male
  Weight: 63 kg

DRUGS (24)
  1. VELCADE [Suspect]
     Indication: MULTIPLE MYELOMA
     Dosage: 1.90 MG, INTRAVENOUS; 1.50MG, INTRAVENOUS
     Route: 042
     Dates: start: 20070601, end: 20070820
  2. VELCADE [Suspect]
     Indication: MULTIPLE MYELOMA
     Dosage: 1.90 MG, INTRAVENOUS; 1.50MG, INTRAVENOUS
     Route: 042
     Dates: start: 20070907, end: 20070917
  3. DECADRON [Suspect]
     Indication: MULTIPLE MYELOMA
     Dosage: 20.00 MG, INTRAVENOUS
     Route: 042
     Dates: start: 20070601, end: 20070602
  4. LASIX [Suspect]
     Indication: GENERALISED OEDEMA
     Dosage: 40.00 MG, ORAL
     Route: 048
     Dates: start: 20070605, end: 20070628
  5. DEXAMETHASONE TAB [Concomitant]
  6. KYTRIL [Concomitant]
  7. SODIUM BICARBONATE [Concomitant]
  8. LASIX [Concomitant]
  9. FAMOTIDINE [Concomitant]
  10. GASMOTIN (MOSAPRIDE CITRATE) [Concomitant]
  11. BIOFERMIN (STREPTOCOCCUS FAECALIS, LACTOBACILLUS ACIDOPHILUS, BACILLUS [Concomitant]
  12. URSO 250 [Concomitant]
  13. ALENDRONATE SODIUM [Concomitant]
  14. NORVASC [Concomitant]
  15. LEVOFLOXACIN [Concomitant]
  16. DIFLUCAN [Concomitant]
  17. ALDACTONE [Concomitant]
  18. MAGNESIUM OXIDE (MAGNESIUM OXIDE) [Concomitant]
  19. ALOSENN (TARAXACUM OFFICINALE, ACHILLEA, SENNA LEAF, RUBIA ROOT TINCTU [Concomitant]
  20. METHYCOBAL (MECOBALAMIN) [Concomitant]
  21. GRAN [Concomitant]
  22. PHELLOBERIN A (CLIOQUINOL, BERBERINE HYDROCHLORIDE, CARMELLOSE SODIUM) [Concomitant]
  23. ALBUMIN TANNATE (ALBUMIN TANNATE) [Concomitant]
  24. NEUTROGIN [Concomitant]

REACTIONS (13)
  - ABDOMINAL PAIN [None]
  - ANAEMIA [None]
  - ASCITES [None]
  - CHOLECYSTITIS CHRONIC [None]
  - DIARRHOEA [None]
  - GENERALISED OEDEMA [None]
  - HYPOAESTHESIA [None]
  - OEDEMA PERIPHERAL [None]
  - PLATELET COUNT DECREASED [None]
  - PLEURAL EFFUSION [None]
  - RENAL IMPAIRMENT [None]
  - VOMITING [None]
  - WHITE BLOOD CELL COUNT DECREASED [None]
